FAERS Safety Report 17718394 (Version 3)
Quarter: 2020Q2

REPORT INFORMATION
  Report Type: Spontaneous
  Country: PT (occurrence: PT)
  Receive Date: 20200428
  Receipt Date: 20200612
  Transmission Date: 20200714
  Serious: Yes (Death, Life-Threatening, Hospitalization, Other)
  Sender: FDA-Public Use
  Company Number: PT-AUROBINDO-AUR-APL-2020-017785

PATIENT
  Age: 58 Year
  Sex: Female
  Weight: 56 kg

DRUGS (18)
  1. DIAZEPAM. [Interacting]
     Active Substance: DIAZEPAM
     Indication: DEPRESSION
     Dosage: UNK
     Route: 065
  2. DOXORUBICIN [Interacting]
     Active Substance: DOXORUBICIN
     Indication: BREAST CANCER
     Dosage: 50 MILLIGRAM/SQ. METER
     Route: 042
     Dates: start: 200804
  3. ATENOLOL. [Suspect]
     Active Substance: ATENOLOL
     Indication: SUPRAVENTRICULAR EXTRASYSTOLES
     Dosage: UNK
     Route: 065
     Dates: start: 200709, end: 20090316
  4. ESTAZOLAM. [Interacting]
     Active Substance: ESTAZOLAM
     Indication: DEPRESSION
     Dosage: UNK
     Route: 065
  5. ESTAZOLAM. [Interacting]
     Active Substance: ESTAZOLAM
     Indication: DEPRESSIVE SYMPTOM
  6. HERCEPTIN [Interacting]
     Active Substance: TRASTUZUMAB
     Indication: INVASIVE DUCTAL BREAST CARCINOMA
     Dosage: 6 MILLIGRAM/KILOGRAM, 3 WEEKS
     Route: 041
     Dates: start: 20081008, end: 20090309
  7. TAMOXIFEN [Concomitant]
     Active Substance: TAMOXIFEN
     Indication: BREAST CANCER
     Dosage: UNK
     Route: 048
     Dates: start: 20080918
  8. TAMOXIFEN [Suspect]
     Active Substance: TAMOXIFEN
     Indication: INVASIVE DUCTAL BREAST CARCINOMA
     Dosage: UNK
     Route: 065
     Dates: start: 200809
  9. HERCEPTIN [Interacting]
     Active Substance: TRASTUZUMAB
     Indication: BREAST CANCER
  10. DOCETAXEL. [Concomitant]
     Active Substance: DOCETAXEL
     Indication: BREAST CANCER
     Dosage: 75 MILLIGRAM/SQ. METER, CYCLICAL
     Route: 042
     Dates: start: 200804
  11. HERCEPTIN [Interacting]
     Active Substance: TRASTUZUMAB
     Indication: HER2 POSITIVE BREAST CANCER
  12. CYCLOPHOSPHAMIDE. [Concomitant]
     Active Substance: CYCLOPHOSPHAMIDE
     Indication: BREAST CANCER
     Dosage: 500 MILLIGRAM/SQ. METER, CYCLICAL
     Route: 042
     Dates: start: 200804
  13. PERINDOPRIL [Suspect]
     Active Substance: PERINDOPRIL
     Indication: PRODUCT USED FOR UNKNOWN INDICATION
     Dosage: 5 MILLIGRAM, DAILY
     Route: 065
     Dates: start: 200903
  14. TAMOXIFEN [Suspect]
     Active Substance: TAMOXIFEN
     Indication: HER2 POSITIVE BREAST CANCER
  15. PERINDOPRIL ARGININE [Concomitant]
     Active Substance: PERINDOPRIL ARGININE
     Indication: EJECTION FRACTION DECREASED
     Dosage: 5 MILLIGRAM, ONCE A DAY
     Route: 048
     Dates: start: 20090316
  16. DIAZEPAM. [Interacting]
     Active Substance: DIAZEPAM
     Indication: DEPRESSIVE SYMPTOM
  17. TIANEPTINE FILM COATED TABLETS [Interacting]
     Active Substance: TIANEPTINE
     Indication: DEPRESSION
  18. TIANEPTINE FILM COATED TABLETS [Interacting]
     Active Substance: TIANEPTINE
     Indication: DEPRESSIVE SYMPTOM
     Dosage: UNK
     Route: 065

REACTIONS (7)
  - Drug interaction [Fatal]
  - Ejection fraction decreased [Fatal]
  - Arrhythmia [Fatal]
  - Left atrial enlargement [Fatal]
  - Depression [Unknown]
  - Cardiac death [Fatal]
  - Sudden cardiac death [Fatal]

NARRATIVE: CASE EVENT DATE: 200901
